FAERS Safety Report 7640475-8 (Version None)
Quarter: 2011Q3

REPORT INFORMATION
  Report Type: 
  Country: None (occurrence: None)
  Receive Date: 20110728
  Receipt Date: 20110718
  Transmission Date: 20111222
  Serious: No
  Sender: FDA-Public Use
  Company Number: US-BIOGENIDEC-2011BI023902

PATIENT
  Age: 51 Year
  Sex: Female

DRUGS (1)
  1. TYSABRI [Suspect]
     Indication: MULTIPLE SCLEROSIS
     Route: 042
     Dates: start: 20110620

REACTIONS (7)
  - PAIN IN EXTREMITY [None]
  - MOVEMENT DISORDER [None]
  - THROAT TIGHTNESS [None]
  - TREMOR [None]
  - STOMATITIS [None]
  - DYSPHAGIA [None]
  - ARTHRALGIA [None]
